FAERS Safety Report 9703063 (Version 1)
Quarter: 2013Q4

REPORT INFORMATION
  Report Type: Spontaneous
  Country: US (occurrence: US)
  Receive Date: 20131122
  Receipt Date: 20131122
  Transmission Date: 20140711
  Serious: Yes (Other)
  Sender: FDA-Public Use
  Company Number: US-BIOGENIDEC-2013BI109982

PATIENT
  Sex: Female
  Weight: 95 kg

DRUGS (6)
  1. AVONEX [Suspect]
     Indication: MULTIPLE SCLEROSIS
     Route: 030
     Dates: start: 20120813
  2. PROVIGIL [Concomitant]
     Route: 048
  3. NUVIGIL [Concomitant]
     Route: 048
  4. BUPROPION HCL [Concomitant]
     Route: 048
  5. VITAMIN D3 [Concomitant]
     Route: 048
  6. GABAPENTIN [Concomitant]
     Route: 048

REACTIONS (6)
  - Hysterectomy [Recovered/Resolved]
  - Uhthoff^s phenomenon [Unknown]
  - Multiple sclerosis [Unknown]
  - Multiple sclerosis relapse [Unknown]
  - Hot flush [Unknown]
  - Influenza like illness [Unknown]
